FAERS Safety Report 5951175-4 (Version None)
Quarter: 2008Q4

REPORT INFORMATION
  Report Type: 
  Country: None (occurrence: None)
  Receive Date: 20081113
  Receipt Date: 20081104
  Transmission Date: 20090506
  Serious: Yes (Other)
  Sender: FDA-Public Use
  Company Number: FR-JNJFOC-20081101252

PATIENT
  Age: 57 Year
  Sex: Male
  Weight: 70 kg

DRUGS (11)
  1. RISPERDAL [Suspect]
     Indication: DRUG USE FOR UNKNOWN INDICATION
  2. LOXAPINE HCL [Suspect]
     Indication: DRUG USE FOR UNKNOWN INDICATION
     Route: 048
  3. NOZINAN [Suspect]
     Indication: DRUG USE FOR UNKNOWN INDICATION
     Route: 048
  4. PRAZEPAM [Suspect]
     Indication: DRUG USE FOR UNKNOWN INDICATION
     Route: 048
  5. ZOLPIDEM [Concomitant]
     Route: 065
  6. TERCIAN [Concomitant]
     Route: 065
  7. ATARAX [Concomitant]
     Route: 065
  8. SEROPLEX [Concomitant]
  9. LEPTICUR [Concomitant]
     Route: 065
  10. COVERSYL [Concomitant]
     Route: 065
  11. DETENSIEL [Concomitant]
     Route: 065

REACTIONS (3)
  - BRADYCARDIA [None]
  - DRUG DISPENSING ERROR [None]
  - SOMNOLENCE [None]
